FAERS Safety Report 10067208 (Version 1)
Quarter: 2014Q2

REPORT INFORMATION
  Report Type: Spontaneous
  Country: US (occurrence: US)
  Receive Date: 20140409
  Receipt Date: 20140409
  Transmission Date: 20141212
  Serious: Yes (Other)
  Sender: FDA-Public Use
  Company Number: US-TEVA-473717USA

PATIENT
  Sex: Female

DRUGS (1)
  1. TREANDA [Suspect]
     Indication: NON-HODGKIN^S LYMPHOMA

REACTIONS (1)
  - Thrombocytopenia [Unknown]
